FAERS Safety Report 9444499 (Version 1)
Quarter: 2013Q3

REPORT INFORMATION
  Report Type: Spontaneous
  Country: US (occurrence: None)
  Receive Date: 20130806
  Receipt Date: 20130806
  Transmission Date: 20140515
  Serious: Yes (Hospitalization)
  Sender: FDA-Public Use
  Company Number: None

PATIENT
  Age: 19 Year
  Sex: Female
  Weight: 45.36 kg

DRUGS (1)
  1. SPIRONOLACTONE [Suspect]
     Dates: start: 20130723, end: 20130802

REACTIONS (6)
  - Urticaria [None]
  - Swelling face [None]
  - Local swelling [None]
  - Joint swelling [None]
  - Local swelling [None]
  - Swelling [None]
